FAERS Safety Report 10172129 (Version 1)
Quarter: 2014Q2

REPORT INFORMATION
  Report Type: Spontaneous
  Country: CH (occurrence: CH)
  Receive Date: 20140515
  Receipt Date: 20140515
  Transmission Date: 20141212
  Serious: Yes (Life-Threatening)
  Sender: FDA-Public Use
  Company Number: PHHY2014CH055817

PATIENT
  Age: 43 Year
  Sex: Female

DRUGS (2)
  1. TEGRETOL [Suspect]
     Dosage: 400 MG, BID
     Dates: start: 201312
  2. AZITHROMYCIN [Interacting]
     Indication: CAT SCRATCH DISEASE
     Dosage: 250 MG, QD
     Dates: start: 20140225, end: 20140228

REACTIONS (1)
  - Agranulocytosis [Recovered/Resolved]
